FAERS Safety Report 25393474 (Version 2)
Quarter: 2025Q2

REPORT INFORMATION
  Report Type: Report from Study
  Country: AU (occurrence: AU)
  Receive Date: 20250604
  Receipt Date: 20250619
  Transmission Date: 20250717
  Serious: Yes (Other)
  Sender: NOVARTIS
  Company Number: AU-002147023-NVSC2024AU097998

PATIENT
  Sex: Female

DRUGS (3)
  1. COSENTYX [Suspect]
     Active Substance: SECUKINUMAB
     Indication: Axial spondyloarthritis
     Dosage: UNK, QMO
     Route: 058
     Dates: start: 20240424
  2. COSENTYX [Suspect]
     Active Substance: SECUKINUMAB
     Dosage: 300 MG, QMO
     Route: 058
  3. COSENTYX [Suspect]
     Active Substance: SECUKINUMAB
     Dosage: 2 DOSAGE FORM, QMO
     Route: 058

REACTIONS (13)
  - Lower respiratory tract infection [Unknown]
  - Headache [Recovered/Resolved]
  - Pharyngitis bacterial [Unknown]
  - Cough [Not Recovered/Not Resolved]
  - Pain [Unknown]
  - Arthralgia [Not Recovered/Not Resolved]
  - Back pain [Not Recovered/Not Resolved]
  - Malaise [Unknown]
  - Influenza [Unknown]
  - Inflammation [Unknown]
  - Tinea infection [Unknown]
  - Eye infection [Unknown]
  - Axillary mass [Recovered/Resolved]

NARRATIVE: CASE EVENT DATE: 20240101
